FAERS Safety Report 22242315 (Version 4)
Quarter: 2023Q2

REPORT INFORMATION
  Report Type: Spontaneous
  Country: US (occurrence: US)
  Receive Date: 20230422
  Receipt Date: 20230527
  Transmission Date: 20230721
  Serious: No
  Sender: FDA-Public Use
  Company Number: US-UNITED THERAPEUTICS-UNT-2023-010715

PATIENT
  Age: 76 Year
  Sex: Female
  Weight: 72.109 kg

DRUGS (8)
  1. REMODULIN [Suspect]
     Active Substance: TREPROSTINIL
     Indication: Pulmonary arterial hypertension
     Dosage: 0.046 ?G/KG, CONTINUING (PHARMACY PRE-FILLED WITH 2.4 ML/CASSETTE WITH RATE OF 21 MCL/HOUR)
     Route: 058
  2. REMODULIN [Suspect]
     Active Substance: TREPROSTINIL
     Dosage: UNK, CONTINUING (PHARMACY FILLED REMUNITY PRE-FILLED WITH 2.2 ML PER CASSETTE WITH RATE OF 21 MCL PE
     Route: 058
  3. REMODULIN [Suspect]
     Active Substance: TREPROSTINIL
     Dosage: UNK, CONTINUING (PHARMACY PRE-FILLED WITH 2.6 ML/CASSETTE WITH RATE OF 24 MCL/HOUR)
     Route: 058
  4. REMODULIN [Suspect]
     Active Substance: TREPROSTINIL
     Dosage: 0.050 ?G/KG (PRE-FILLED WITH 2.6 ML PER CASSETTE AT AN INFUSION RATE OF 26 MCL PER HOUR), CONTINUING
     Route: 058
  5. REMODULIN [Suspect]
     Active Substance: TREPROSTINIL
     Dosage: 0.052 ?G/KG (PHARMACY FILLED 2.8ML PER CASSETTE AT A PUMP RATE 27MCL/HOUR), CONTINUING
     Route: 058
  6. REMODULIN [Suspect]
     Active Substance: TREPROSTINIL
     Dosage: UNK, CONTINUING
     Route: 058
     Dates: start: 20221003
  7. TADALAFIL [Concomitant]
     Active Substance: TADALAFIL
     Indication: Product used for unknown indication
     Dosage: UNK
     Route: 065
  8. ELIQUIS [Concomitant]
     Active Substance: APIXABAN
     Indication: Product used for unknown indication
     Dosage: UNK
     Route: 065

REACTIONS (5)
  - Infusion site haemorrhage [Unknown]
  - Diarrhoea [Unknown]
  - Infusion site erythema [Unknown]
  - Infusion site irritation [Unknown]
  - Nausea [Unknown]

NARRATIVE: CASE EVENT DATE: 20230401
